FAERS Safety Report 8615839-6 (Version None)
Quarter: 2012Q3

REPORT INFORMATION
  Report Type: 
  Country: None (occurrence: None)
  Receive Date: 20120823
  Receipt Date: 20120821
  Transmission Date: 20120928
  Serious: Yes (Death, Other)
  Sender: FDA-Public Use
  Company Number: PHHY2012GB072135

PATIENT
  Age: 80 Year
  Sex: Female
  Weight: 130 kg

DRUGS (10)
  1. WARFARIN SODIUM [Suspect]
     Dosage: 1 MG, UNK
     Dates: start: 20110721
  2. CAPTOPRIL [Concomitant]
     Dosage: 50 MG, QD
  3. ATENOLOL [Concomitant]
     Dosage: 50 MG, QD
  4. BENDROFLUMETHIAZIDE [Concomitant]
     Dosage: 2.5 MG, QD
  5. DOXAZOSIN MESYLATE [Concomitant]
     Dosage: 1 MG, QD
  6. CLINDAMYCIN [Interacting]
     Indication: CELLULITIS
     Dosage: 450 MG, QID
     Route: 048
     Dates: start: 20111017, end: 20111025
  7. CODEINE [Concomitant]
     Indication: PAIN
     Dosage: 15 MG, PRN
  8. ACETAMINOPHEN [Concomitant]
     Indication: PAIN
     Dosage: 500 MG, PRN
  9. PHENOXYMETHYLPENICILLIN [Concomitant]
     Dosage: 250 MG, BID
  10. ADALAT CC [Concomitant]
     Dosage: 1 DF, QD

REACTIONS (3)
  - DRUG INTERACTION [None]
  - COAGULOPATHY [None]
  - RETROPERITONEAL HAEMORRHAGE [None]
